FAERS Safety Report 7577126-7 (Version None)
Quarter: 2011Q2

REPORT INFORMATION
  Report Type: 
  Country: None (occurrence: None)
  Receive Date: 20110628
  Receipt Date: 20090108
  Transmission Date: 20111010
  Serious: Yes (Death, Hospitalization, Other)
  Sender: FDA-Public Use
  Company Number: US-BAYER-200910068NA

PATIENT
  Age: 71 Year
  Sex: Male
  Weight: 83 kg

DRUGS (28)
  1. ETOMIDATE [Concomitant]
     Dosage: 15 MG, UNK
     Route: 042
     Dates: start: 20050928, end: 20050928
  2. PROPOFOL [Concomitant]
     Dosage: UNK
     Route: 042
     Dates: start: 20050928, end: 20050928
  3. LISINOPRIL [Concomitant]
     Dosage: 40 MG, ONCE
     Route: 048
     Dates: start: 20050823
  4. ATENOLOL [Concomitant]
     Dosage: 100 MG, ONCE
     Route: 048
     Dates: start: 20050823
  5. HEPARIN [Concomitant]
     Dosage: 10 ML, UNK
     Dates: start: 20050928, end: 20050928
  6. MORPHINE [Concomitant]
     Dosage: 10 MG, UNK
     Dates: start: 20050928, end: 20050928
  7. LASIX [Concomitant]
     Dosage: UNK
     Route: 048
  8. INDOCIN [Concomitant]
     Route: 048
  9. FENTANYL [Concomitant]
     Dosage: 5 MG, UNK
     Route: 042
     Dates: start: 20050928, end: 20050928
  10. VANCOMYCIN [Concomitant]
     Dosage: 1 G, UNK
     Route: 042
     Dates: start: 20050928
  11. AVITENE [Concomitant]
     Dosage: 1 G, UNK
     Route: 042
     Dates: start: 20050928, end: 20050928
  12. THROMBIN LOCAL SOLUTION [Concomitant]
     Dosage: 5000 UNITS,STERNAL PASTE
     Dates: start: 20050928, end: 20050928
  13. TRASYLOL [Suspect]
     Indication: CORONARY ARTERY BYPASS
     Dosage: 200 CC PRIME
     Route: 042
     Dates: start: 20050928, end: 20050928
  14. HYDROCHLOROTHIAZIDE [Concomitant]
     Dosage: 25 MG, ONCE
     Route: 048
     Dates: start: 20050823
  15. ZINACEF [Concomitant]
     Dosage: 1 G, UNK
     Route: 042
     Dates: start: 20050928, end: 20050928
  16. NAPROXEN (ALEVE) [Concomitant]
     Dosage: UNK
     Route: 048
  17. VYTORIN [Concomitant]
     Dosage: 10/40 MG, DAILY
     Route: 048
     Dates: start: 20050823
  18. MANNITOL [Concomitant]
     Dosage: 50 ML PRIME
     Route: 042
     Dates: start: 20050928, end: 20050928
  19. PAPAVERINE [Concomitant]
     Dosage: 20 MG, UNK
     Route: 042
     Dates: start: 20050928, end: 20050928
  20. ASPIRIN [Concomitant]
     Dosage: 81 MG, UNK
     Route: 048
     Dates: start: 20050823
  21. GLYBURIDE [Concomitant]
     Dosage: 5 MG, BID
     Route: 048
     Dates: start: 20050823
  22. BENADRYL [Concomitant]
     Dosage: 25 MG, UNK
     Dates: start: 20050928, end: 20050928
  23. NEOSYNEPHRINE [Concomitant]
     Dosage: 300 MG, UNK
     Route: 042
     Dates: start: 20050928, end: 20050928
  24. EPINEPHRINE [Concomitant]
     Dosage: UNK
     Route: 042
     Dates: start: 20050928, end: 20050928
  25. CEFUROXIME [Concomitant]
     Dosage: 1 G, UNK
     Route: 042
     Dates: start: 20050928, end: 20050928
  26. TRASYLOL [Suspect]
     Dosage: 50 CC/HR INFUSION
     Route: 042
     Dates: start: 20050928, end: 20050928
  27. ZANTAC [Concomitant]
     Dosage: 150 MG, BID
     Route: 048
     Dates: start: 20050823
  28. AVANDIA [Concomitant]
     Dosage: 8 MG, ONCE
     Route: 048
     Dates: start: 20050923

REACTIONS (5)
  - UNEVALUABLE EVENT [None]
  - PAIN [None]
  - RENAL FAILURE [None]
  - INJURY [None]
  - DEATH [None]
